FAERS Safety Report 21380406 (Version 12)
Quarter: 2023Q1

REPORT INFORMATION
  Report Type: Report from Study
  Country: US (occurrence: None)
  Receive Date: 20220927
  Receipt Date: 20230224
  Transmission Date: 20230418
  Serious: Yes (Hospitalization)
  Sender: FDA-Public Use
  Company Number: US-Eisai Medical Research-EC-2022-124390

PATIENT
  Age: 64 Year
  Sex: Female
  Weight: 42.3 kg

DRUGS (8)
  1. LENVATINIB [Suspect]
     Active Substance: LENVATINIB
     Indication: Gallbladder adenocarcinoma
     Route: 048
     Dates: start: 20220906, end: 20220913
  2. LENVATINIB [Suspect]
     Active Substance: LENVATINIB
     Route: 048
     Dates: start: 20221018, end: 20221108
  3. PEMBROLIZUMAB [Suspect]
     Active Substance: PEMBROLIZUMAB
     Indication: Gallbladder adenocarcinoma
     Route: 041
     Dates: start: 20220906, end: 20220906
  4. PEMBROLIZUMAB [Suspect]
     Active Substance: PEMBROLIZUMAB
     Route: 041
     Dates: start: 20221018, end: 20221018
  5. BELZUTIFAN [Suspect]
     Active Substance: BELZUTIFAN
     Indication: Gallbladder adenocarcinoma
     Route: 048
     Dates: start: 20220906, end: 20220913
  6. BELZUTIFAN [Suspect]
     Active Substance: BELZUTIFAN
     Dosage: STARTING AT 80 MILLIGRAM, FLUCTUATED DOSAGE
     Route: 048
     Dates: start: 20220926, end: 20221108
  7. LEVOTHYROXINE SODIUM [Concomitant]
     Active Substance: LEVOTHYROXINE SODIUM
     Dates: start: 201501
  8. CLOTRIMAZOLE [Concomitant]
     Active Substance: CLOTRIMAZOLE
     Dates: start: 20220413

REACTIONS (1)
  - Fistula of small intestine [Recovered/Resolved]

NARRATIVE: CASE EVENT DATE: 20220918
